FAERS Safety Report 12450165 (Version 2)
Quarter: 2016Q3

REPORT INFORMATION
  Report Type: Spontaneous
  Country: JP (occurrence: JP)
  Receive Date: 20160609
  Receipt Date: 20160708
  Transmission Date: 20161109
  Serious: Yes (Life-Threatening, Hospitalization)
  Sender: FDA-Public Use
  Company Number: JP-ROCHE-1772612

PATIENT
  Age: 67 Year
  Sex: Male
  Weight: 58 kg

DRUGS (8)
  1. XELODA [Suspect]
     Active Substance: CAPECITABINE
     Indication: RECTOSIGMOID CANCER
     Route: 048
     Dates: start: 20160401, end: 20160414
  2. TANATRIL [Concomitant]
     Active Substance: IMIDAPRIL
     Indication: HYPERTENSION
     Route: 048
  3. METGLUCO [Concomitant]
     Active Substance: METFORMIN HYDROCHLORIDE
     Indication: DIABETES MELLITUS
     Route: 048
  4. ADSORBIN [Concomitant]
     Active Substance: ALUMINUM SILICATE
     Indication: COLON CANCER
     Route: 048
     Dates: start: 20160317
  5. BAYASPIRIN [Concomitant]
     Active Substance: ASPIRIN
     Indication: CEREBRAL INFARCTION
     Route: 048
  6. LIPITOR [Concomitant]
     Active Substance: ATORVASTATIN CALCIUM
     Route: 048
  7. MIYA-BM [Concomitant]
     Active Substance: CLOSTRIDIUM BUTYRICUM SPORES STRAIN M-55
     Indication: COLON CANCER
     Route: 048
     Dates: start: 20160301
  8. GASTER [Concomitant]
     Active Substance: FAMOTIDINE
     Route: 048

REACTIONS (2)
  - Dehydration [Unknown]
  - Acute kidney injury [Recovering/Resolving]

NARRATIVE: CASE EVENT DATE: 20160517
